FAERS Safety Report 7282051-5 (Version None)
Quarter: 2011Q1

REPORT INFORMATION
  Report Type: 
  Country: None (occurrence: None)
  Receive Date: 20110208
  Receipt Date: 20110124
  Transmission Date: 20110831
  Serious: Yes (Other)
  Sender: FDA-Public Use
  Company Number: US-CELGENEUS-163-20785-11012729

PATIENT
  Age: 15 Year
  Sex: Female

DRUGS (1)
  1. THALOMID [Suspect]
     Indication: CROHN'S DISEASE
     Route: 048

REACTIONS (1)
  - OVARIAN FAILURE [None]
